FAERS Safety Report 4654160-8 (Version None)
Quarter: 2005Q2

REPORT INFORMATION
  Report Type: 
  Country: None (occurrence: None)
  Receive Date: 20050404
  Receipt Date: 20041215
  Transmission Date: 20051028
  Serious: No
  Sender: FDA-Public Use
  Company Number: USA041286211

PATIENT
  Age: 55 Year
  Sex: Female

DRUGS (5)
  1. CYMBALTA (DULOEXTINE HYDROCHLORIDE) [Suspect]
     Indication: FIBROMYALGIA
     Dosage: 60 MG/1 DAY
     Dates: start: 20041117
  2. TOPROL-XL [Concomitant]
  3. ALDACTONE [Concomitant]
  4. NEURONTIN (GABAPENTIN PFIZER) [Concomitant]
  5. AMBIEN [Concomitant]

REACTIONS (1)
  - BREAST TENDERNESS [None]
